FAERS Safety Report 5187686-1 (Version None)
Quarter: 2006Q4

REPORT INFORMATION
  Report Type: 
  Country: None (occurrence: None)
  Receive Date: 20061214
  Receipt Date: 20061204
  Transmission Date: 20070319
  Serious: Yes (Hospitalization)
  Sender: FDA-Public Use
  Company Number: 229717

PATIENT
  Age: 31 Year
  Sex: 0

DRUGS (5)
  1. RITUXIMAB(RITUXIMAB) CONC FOR SOLUTION FOR INFUSION [Suspect]
     Indication: NON-HODGKIN'S LYMPHOMA
     Dosage: 375 MG, INTRAVENOUS
     Route: 042
     Dates: start: 20051124, end: 20060302
  2. CYCLOPHOSPHAMIDE [Suspect]
     Indication: NON-HODGKIN'S LYMPHOMA
     Dosage: 1200 MG, INTRAVENOUS
     Route: 042
     Dates: start: 20051104, end: 20060303
  3. DOXORUBICIN HCL [Suspect]
     Indication: NON-HODGKIN'S LYMPHOMA
     Dosage: 80 MG, INTRAVENOUS
     Route: 042
     Dates: start: 20051104, end: 20060303
  4. ONCOVIN [Suspect]
     Indication: NON-HODGKIN'S LYMPHOMA
     Dosage: 2 MG, INTRAVENOUS
     Route: 042
     Dates: start: 20051104, end: 20060303
  5. PREDNISONE(PREDNISONE, PREDNISOLONE SODIUM SUCCINATE) [Suspect]
     Indication: NON-HODGKIN'S LYMPHOMA
     Dosage: 100 MG, ORAL
     Route: 048
     Dates: start: 20051104, end: 20060303

REACTIONS (1)
  - AGRANULOCYTOSIS [None]
